FAERS Safety Report 9291435 (Version 1)
Quarter: 2013Q2

REPORT INFORMATION
  Report Type: Spontaneous
  Country: US (occurrence: US)
  Receive Date: 20130515
  Receipt Date: 20130515
  Transmission Date: 20140414
  Serious: No
  Sender: FDA-Public Use
  Company Number: US-ASTRAZENECA-2013SE29915

PATIENT
  Age: 62 Year
  Sex: Male
  Weight: 97.5 kg

DRUGS (12)
  1. PULMICORT FLEXHALER [Suspect]
     Indication: ASTHMA
     Route: 055
     Dates: start: 20130425
  2. DEPAKOTE [Concomitant]
     Indication: MIGRAINE
     Route: 048
  3. TRILEPTAL [Concomitant]
     Indication: MIGRAINE
     Route: 048
  4. NEURONTIN [Concomitant]
     Indication: MIGRAINE
     Route: 048
  5. PRIMIDONE [Concomitant]
     Indication: TREMOR
     Route: 048
  6. ASPIRIN [Concomitant]
     Indication: PROMOTION OF PERIPHERAL CIRCULATION
     Route: 048
  7. LOVASTATIN [Concomitant]
     Indication: BLOOD CHOLESTEROL ABNORMAL
     Route: 048
  8. METFORMIN [Concomitant]
     Indication: DIABETES MELLITUS
     Route: 048
  9. VICOPROFEN GENERIC [Concomitant]
     Indication: HEADACHE
     Route: 048
  10. DICLOFENAC [Concomitant]
     Indication: ARTHRALGIA
     Route: 048
  11. METAMUCIL [Concomitant]
     Indication: GASTROINTESTINAL MOTILITY DISORDER
     Route: 048
  12. ADVAIR [Concomitant]
     Indication: ASTHMA
     Route: 055

REACTIONS (4)
  - Buccal mucosal roughening [Unknown]
  - Dizziness [Unknown]
  - Dyspepsia [Recovering/Resolving]
  - Intentional drug misuse [Recovered/Resolved]
